FAERS Safety Report 5276678-X (Version None)
Quarter: 2007Q1

REPORT INFORMATION
  Report Type: 
  Country: None (occurrence: None)
  Receive Date: 20070327
  Receipt Date: 20070315
  Transmission Date: 20070707
  Serious: Yes (Other)
  Sender: FDA-Public Use
  Company Number: PHHO2007BE05126

PATIENT
  Age: 39 Year
  Sex: Female

DRUGS (9)
  1. LEPONEX [Suspect]
     Dosage: 75 MG, DAILY
     Route: 048
     Dates: start: 20000101, end: 20060912
  2. LEPONEX [Suspect]
     Dosage: 100 MG DAILY
     Dates: start: 20060913, end: 20060913
  3. LEPONEX [Suspect]
     Dosage: 150 MG DAILY
     Dates: start: 20060914, end: 20060915
  4. LEPONEX [Suspect]
     Dosage: 200 MG DAILY
     Dates: start: 20060916, end: 20060916
  5. LEPONEX [Suspect]
     Dosage: 250 MG DAILY
     Dates: start: 20060917, end: 20060918
  6. LEPONEX [Suspect]
     Dosage: 300 MG DAILY
     Dates: start: 20060919, end: 20060921
  7. LEPONEX [Suspect]
     Dosage: 400 MG DAILY
     Dates: start: 20060922, end: 20060928
  8. LEPONEX [Suspect]
     Dosage: 300 MG DAILY
     Dates: start: 20060929, end: 20061028
  9. LEPONEX [Suspect]
     Dosage: 100 MG DAILY
     Dates: start: 20061029, end: 20061204

REACTIONS (1)
  - ELECTROCARDIOGRAM QT PROLONGED [None]
